FAERS Safety Report 25074661 (Version 1)
Quarter: 2025Q1

REPORT INFORMATION
  Report Type: Spontaneous
  Country: AT (occurrence: AT)
  Receive Date: 20250313
  Receipt Date: 20250313
  Transmission Date: 20250409
  Serious: Yes (Hospitalization, Other)
  Sender: ABBVIE
  Company Number: AT-ABBVIE-6172751

PATIENT
  Age: 66 Year
  Sex: Female

DRUGS (2)
  1. ELAHERE [Suspect]
     Active Substance: MIRVETUXIMAB SORAVTANSINE-GYNX
     Indication: Ovarian cancer
     Route: 042
     Dates: start: 20241217, end: 20241217
  2. ELAHERE [Suspect]
     Active Substance: MIRVETUXIMAB SORAVTANSINE-GYNX
     Indication: Ovarian cancer
     Route: 042
     Dates: start: 20241126, end: 20241126

REACTIONS (10)
  - Neoplasm progression [Unknown]
  - Chills [Unknown]
  - Myalgia [Unknown]
  - Nausea [Unknown]
  - Abnormal faeces [Unknown]
  - Gastrointestinal disorder [Unknown]
  - Disease risk factor [Unknown]
  - Malignant peritoneal neoplasm [Unknown]
  - Back pain [Unknown]
  - Ileus [Unknown]

NARRATIVE: CASE EVENT DATE: 20241126
